FAERS Safety Report 10201265 (Version 1)
Quarter: 2014Q2

REPORT INFORMATION
  Report Type: Spontaneous
  Country: CO (occurrence: CO)
  Receive Date: 20140528
  Receipt Date: 20140528
  Transmission Date: 20141212
  Serious: Yes (Other)
  Sender: FDA-Public Use
  Company Number: CO-JNJFOC-20140514409

PATIENT
  Sex: Male
  Weight: 71 kg

DRUGS (1)
  1. REMICADE [Suspect]
     Indication: COLITIS ULCERATIVE
     Route: 042

REACTIONS (6)
  - Tongue ulceration [Unknown]
  - Nasal ulcer [Unknown]
  - Nasal septum deviation [Unknown]
  - Weight decreased [Unknown]
  - Ageusia [Unknown]
  - Aphagia [Unknown]
